FAERS Safety Report 4582278-7 (Version None)
Quarter: 2005Q1

REPORT INFORMATION
  Report Type: 
  Country: None (occurrence: None)
  Receive Date: 20050127
  Receipt Date: 20040927
  Transmission Date: 20050727
  Serious: No
  Sender: FDA-Public Use
  Company Number: USA040979325

PATIENT
  Age: 48 Year
  Sex: Female
  Weight: 68 kg

DRUGS (3)
  1. STRATTERA [Suspect]
     Indication: ATTENTION DEFICIT/HYPERACTIVITY DISORDER
     Dosage: 80 MG DAY
  2. ZOLOFT [Concomitant]
  3. ALLEGRA [Concomitant]

REACTIONS (3)
  - FEELING ABNORMAL [None]
  - STRESS [None]
  - WEIGHT INCREASED [None]
